FAERS Safety Report 9871180 (Version 1)
Quarter: 2014Q1

REPORT INFORMATION
  Report Type: Spontaneous
  Country: US (occurrence: US)
  Receive Date: 20140205
  Receipt Date: 20140205
  Transmission Date: 20141002
  Serious: No
  Sender: FDA-Public Use
  Company Number: US-ROXANE LABORATORIES, INC.-2014-RO-00159RO

PATIENT
  Sex: Female

DRUGS (1)
  1. PREDNISONE [Suspect]
     Indication: BRONCHITIS
     Route: 048

REACTIONS (1)
  - Blood glucose increased [Recovered/Resolved]
